FAERS Safety Report 6413524-2 (Version None)
Quarter: 2009Q4

REPORT INFORMATION
  Report Type: 
  Country: None (occurrence: None)
  Receive Date: 20091026
  Receipt Date: 20091020
  Transmission Date: 20100525
  Serious: Yes (Death)
  Sender: FDA-Public Use
  Company Number: US-KINGPHARMUSA00001-K200901223

PATIENT
  Age: 28 Year
  Sex: Male
  Weight: 99.32 kg

DRUGS (16)
  1. EMBEDA [Suspect]
     Indication: BACK PAIN
     Dosage: 60 MG, BID
     Route: 048
     Dates: start: 20090928
  2. AVINZA [Suspect]
     Indication: BACK PAIN
     Dosage: 60 MG, QD
     Route: 048
     Dates: start: 20090924
  3. GABAPENTIN [Concomitant]
     Dosage: 300 MG, TID
  4. CLARINEX [Concomitant]
     Indication: SEASONAL ALLERGY
     Dosage: 5 MG, QD
  5. ALBUTEROL [Concomitant]
     Dosage: UNK
  6. ADVAIR DISKUS 100/50 [Concomitant]
     Dosage: ^50/500,^ BID
  7. CYMBALTA [Concomitant]
     Dosage: UNK
  8. ALLEGRA D 24 HOUR [Concomitant]
     Indication: SEASONAL ALLERGY
     Dosage: UNK
  9. LITHIUM [Concomitant]
     Dosage: UNK
     Dates: start: 20090925
  10. ALPRAZOLAM [Concomitant]
     Dosage: 0.5 MG, TID
  11. CYCLOBENZAPRINE HCL [Concomitant]
     Dosage: 10 MG, TID
  12. NEXIUM [Concomitant]
     Dosage: 40 MG, BID
  13. LOMOTIL [Concomitant]
     Dosage: 2.5 MG, PRN
  14. BENZONATATE [Concomitant]
     Dosage: 200 MG, PRN
  15. IBUPROFEN [Concomitant]
     Indication: BACK PAIN
     Dosage: 800 MG, TID
     Route: 048
  16. NASAL PREPARATIONS [Concomitant]
     Dosage: UNK
     Route: 045

REACTIONS (1)
  - DEATH [None]
